FAERS Safety Report 7414124-8 (Version None)
Quarter: 2011Q1

REPORT INFORMATION
  Report Type: 
  Country: None (occurrence: None)
  Receive Date: 20110302
  Receipt Date: 20101126
  Transmission Date: 20110831
  Serious: No
  Sender: FDA-Public Use
  Company Number: 018450

PATIENT
  Sex: Female
  Weight: 57.1 kg

DRUGS (2)
  1. CIMZIA [Suspect]
     Indication: CROHN'S DISEASE
     Dosage: 400 MG 1X/4 WEEKS SUBCUTANEOUS
     Route: 058
     Dates: start: 20100717
  2. ASACOL [Concomitant]

REACTIONS (5)
  - FREQUENT BOWEL MOVEMENTS [None]
  - CHILLS [None]
  - CROHN'S DISEASE [None]
  - CHEST PAIN [None]
  - RESPIRATORY RATE INCREASED [None]
